FAERS Safety Report 13671386 (Version 1)
Quarter: 2017Q2

REPORT INFORMATION
  Report Type: Spontaneous
  Country: US (occurrence: US)
  Receive Date: 20170620
  Receipt Date: 20170620
  Transmission Date: 20170830
  Serious: Yes (Other)
  Sender: FDA-Public Use
  Company Number: US-ROCHE-664994

PATIENT
  Age: 47 Year
  Sex: Female

DRUGS (8)
  1. OXALIPLATIN. [Suspect]
     Active Substance: OXALIPLATIN
     Indication: PRODUCT USED FOR UNKNOWN INDICATION
     Route: 065
  2. 5-FU [Concomitant]
     Active Substance: FLUOROURACIL
     Route: 065
  3. CAMPTOSAR [Concomitant]
     Active Substance: IRINOTECAN HYDROCHLORIDE
     Route: 065
  4. FOLINIC ACID [Concomitant]
     Active Substance: LEUCOVORIN
     Route: 065
  5. AVASTIN [Suspect]
     Active Substance: BEVACIZUMAB
     Indication: COLORECTAL CANCER
     Route: 042
  6. XELODA [Suspect]
     Active Substance: CAPECITABINE
     Indication: COLORECTAL CANCER
     Route: 048
  7. 5-FU [Concomitant]
     Active Substance: FLUOROURACIL
     Route: 065
  8. FOLINIC ACID [Concomitant]
     Active Substance: LEUCOVORIN
     Route: 065

REACTIONS (2)
  - Diarrhoea [Recovered/Resolved]
  - Weight decreased [Unknown]
